FAERS Safety Report 9221671 (Version 1)
Quarter: 2013Q2

REPORT INFORMATION
  Report Type: Spontaneous
  Country: CO (occurrence: CO)
  Receive Date: 20130410
  Receipt Date: 20130410
  Transmission Date: 20140414
  Serious: Yes (Other)
  Sender: FDA-Public Use
  Company Number: CO-JNJFOC-20130400808

PATIENT
  Age: 29 Year
  Sex: Female

DRUGS (2)
  1. INVEGA SUSTENNA [Suspect]
     Indication: SCHIZOPHRENIA
     Route: 030
     Dates: start: 20130312
  2. INVEGA SUSTENNA [Suspect]
     Indication: SCHIZOPHRENIA
     Route: 030
     Dates: start: 20110626

REACTIONS (5)
  - Cyanosis [Recovered/Resolved]
  - Tachycardia [Unknown]
  - Anxiety [Unknown]
  - Abdominal pain upper [Unknown]
  - Nausea [Unknown]
